FAERS Safety Report 5879456-3 (Version None)
Quarter: 2008Q3

REPORT INFORMATION
  Report Type: 
  Country: None (occurrence: None)
  Receive Date: 20080912
  Receipt Date: 20080902
  Transmission Date: 20090109
  Serious: Yes (Hospitalization)
  Sender: FDA-Public Use
  Company Number: PHHO2008IT09383

PATIENT
  Sex: Male
  Weight: 51.5 kg

DRUGS (1)
  1. ICL670A ICL+ [Suspect]
     Indication: IRON OVERLOAD
     Dosage: 1000 MG / KG / DAY
     Route: 048
     Dates: start: 20080327, end: 20080722

REACTIONS (6)
  - BLOOD CREATININE INCREASED [None]
  - CHEST INJURY [None]
  - CREATININE RENAL CLEARANCE DECREASED [None]
  - DIZZINESS [None]
  - FALL [None]
  - PYREXIA [None]
